FAERS Safety Report 24869455 (Version 2)
Quarter: 2025Q4

REPORT INFORMATION
  Report Type: Report from Study
  Country: JP (occurrence: JP)
  Receive Date: 20250121
  Receipt Date: 20251002
  Transmission Date: 20260119
  Serious: No
  Sender: ASTELLAS
  Company Number: JP-ASTELLAS-2025-AER-003739

PATIENT
  Age: 81 Year
  Sex: Male

DRUGS (9)
  1. ISAVUCONAZOLE [Suspect]
     Active Substance: ISAVUCONAZOLE
     Indication: Mucormycosis
     Dosage: CAPSULE, HARD
     Route: 048
     Dates: start: 20240522, end: 20241129
  2. ISAVUCONAZOLE [Suspect]
     Active Substance: ISAVUCONAZOLE
     Dosage: CAPSULE, HARD
     Route: 048
     Dates: start: 20240123, end: 20240315
  3. AMLODIPINE [Concomitant]
     Active Substance: AMLODIPINE BESYLATE
     Indication: Illness
     Route: 065
  4. ENTRESTO [Concomitant]
     Active Substance: SACUBITRIL\VALSARTAN
     Indication: Illness
     Route: 065
  5. CARBOCYSTEINE [Concomitant]
     Active Substance: CARBOCYSTEINE
     Indication: Illness
     Route: 065
  6. SENNOSIDES [Concomitant]
     Active Substance: SENNOSIDES
     Indication: Illness
     Route: 065
  7. VONOPRAZAN FUMARATE [Concomitant]
     Active Substance: VONOPRAZAN FUMARATE
     Indication: Product used for unknown indication
     Dosage: ONGOING
     Route: 065
     Dates: start: 20240301
  8. ASPIRIN [Concomitant]
     Active Substance: ASPIRIN
     Indication: Illness
     Route: 065
     Dates: end: 20240228
  9. SENNOSIDES [Concomitant]
     Active Substance: SENNOSIDES
     Indication: Illness
     Route: 065

REACTIONS (3)
  - Amylase increased [Not Recovered/Not Resolved]
  - Dry mouth [Recovered/Resolved]
  - Oral discomfort [Recovered/Resolved]

NARRATIVE: CASE EVENT DATE: 20240129
